FAERS Safety Report 8660960 (Version 8)
Quarter: 2018Q1

REPORT INFORMATION
  Report Type: Spontaneous
  Country: US (occurrence: US)
  Receive Date: 20120711
  Receipt Date: 20180323
  Transmission Date: 20180509
  Serious: No
  Sender: FDA-Public Use
  Company Number: US-ASTRAZENECA-2012SE43732

PATIENT
  Age: 26454 Day
  Sex: Female
  Weight: 34.9 kg

DRUGS (35)
  1. SYMBICORT [Suspect]
     Active Substance: BUDESONIDE\FORMOTEROL FUMARATE DIHYDRATE
     Indication: BRONCHITIS
     Dosage: 160/4.5 MICROGRAMS TWO PUFFS TWO TIMES A DAY
     Route: 055
  2. SYMBICORT [Suspect]
     Active Substance: BUDESONIDE\FORMOTEROL FUMARATE DIHYDRATE
     Indication: DYSPNOEA
     Dosage: 160/4.5 MICROGRAMS, UNKNOWN UNKNOWN
     Route: 055
  3. XOPENEX [Concomitant]
     Active Substance: LEVALBUTEROL HYDROCHLORIDE
     Indication: ASTHMA
     Route: 055
  4. PROAIR HFA [Concomitant]
     Active Substance: ALBUTEROL SULFATE
     Indication: ASTHMA
  5. SYMBICORT [Suspect]
     Active Substance: BUDESONIDE\FORMOTEROL FUMARATE DIHYDRATE
     Indication: ASTHMA
     Dosage: 160/4.5 MICROGRAMS TWO PUFFS TWO TIMES A DAY
     Route: 055
     Dates: start: 20160815
  6. SYMBICORT [Suspect]
     Active Substance: BUDESONIDE\FORMOTEROL FUMARATE DIHYDRATE
     Indication: BRONCHITIS
     Dosage: 160/4.5 MICROGRAMS, UNKNOWN UNKNOWN
     Route: 055
  7. SYMBICORT [Suspect]
     Active Substance: BUDESONIDE\FORMOTEROL FUMARATE DIHYDRATE
     Indication: ASTHMA
     Dosage: 160/4.5 MICROGRAMS TWO PUFFS TWO TIMES A DAY
     Route: 055
     Dates: start: 20170404
  8. SYMBICORT [Suspect]
     Active Substance: BUDESONIDE\FORMOTEROL FUMARATE DIHYDRATE
     Indication: DYSPNOEA
     Dosage: 160/4.5 MICROGRAMS TWO PUFFS TWO TIMES A DAY
     Route: 055
     Dates: start: 20170404
  9. SYMBICORT [Suspect]
     Active Substance: BUDESONIDE\FORMOTEROL FUMARATE DIHYDRATE
     Indication: ALLERGY TO CHEMICALS
     Dosage: 160/4.5 MICROGRAMS, UNKNOWN UNKNOWN
     Route: 055
  10. XOPENEX [Concomitant]
     Active Substance: LEVALBUTEROL HYDROCHLORIDE
     Indication: ASTHMA
     Dosage: 2 PUFFS EVERY 6 HRS PRN
     Route: 055
  11. SYMBICORT [Suspect]
     Active Substance: BUDESONIDE\FORMOTEROL FUMARATE DIHYDRATE
     Indication: ASTHMA
     Dosage: 80/4.5 MICROGRAMS, TWO PUFFS TWO TIMES A DAY
     Route: 055
     Dates: end: 20120620
  12. SYMBICORT [Suspect]
     Active Substance: BUDESONIDE\FORMOTEROL FUMARATE DIHYDRATE
     Indication: ALLERGY TO CHEMICALS
     Dosage: 80/4.5 MICROGRAMS, TWO PUFFS TWO TIMES A DAY
     Route: 055
     Dates: end: 20120620
  13. SYMBICORT [Suspect]
     Active Substance: BUDESONIDE\FORMOTEROL FUMARATE DIHYDRATE
     Indication: ASTHMA
     Dosage: 80/4.5 MICROGRAMS, TWO PUFFS TWO TIMES A DAY
     Route: 055
     Dates: start: 201310, end: 20160814
  14. SYMBICORT [Suspect]
     Active Substance: BUDESONIDE\FORMOTEROL FUMARATE DIHYDRATE
     Indication: ALLERGY TO CHEMICALS
     Dosage: 160/4.5 MICROGRAMS TWO PUFFS TWO TIMES A DAY
     Route: 055
     Dates: start: 20160815
  15. SYMBICORT [Suspect]
     Active Substance: BUDESONIDE\FORMOTEROL FUMARATE DIHYDRATE
     Indication: DYSPNOEA
     Dosage: 160/4.5 MICROGRAMS TWO PUFFS TWO TIMES A DAY
     Route: 055
     Dates: start: 20160815
  16. SYMBICORT [Suspect]
     Active Substance: BUDESONIDE\FORMOTEROL FUMARATE DIHYDRATE
     Indication: BRONCHITIS
     Dosage: 160/4.5 MICROGRAMS TWO PUFFS TWO TIMES A DAY
     Route: 055
     Dates: start: 20170404
  17. SYMBICORT [Suspect]
     Active Substance: BUDESONIDE\FORMOTEROL FUMARATE DIHYDRATE
     Indication: DYSPNOEA
     Dosage: 160/4.5 MICROGRAMS TWO PUFFS TWO TIMES A DAY
     Route: 055
  18. SYMBICORT [Suspect]
     Active Substance: BUDESONIDE\FORMOTEROL FUMARATE DIHYDRATE
     Indication: BRONCHITIS
     Dosage: 160/4.5 MICROGRAMS TWO PUFFS TWO TIMES A DAY
     Route: 055
     Dates: start: 201609
  19. SYMBICORT [Suspect]
     Active Substance: BUDESONIDE\FORMOTEROL FUMARATE DIHYDRATE
     Indication: ASTHMA
     Dosage: 160/4.5 MICROGRAMS TWO PUFFS TWO TIMES A DAY
     Route: 055
  20. XOPENEX [Concomitant]
     Active Substance: LEVALBUTEROL HYDROCHLORIDE
     Indication: DYSPNOEA
     Route: 055
  21. SYMBICORT [Suspect]
     Active Substance: BUDESONIDE\FORMOTEROL FUMARATE DIHYDRATE
     Indication: BRONCHITIS
     Dosage: 80/4.5 MICROGRAMS, TWO PUFFS TWO TIMES A DAY
     Route: 055
     Dates: start: 201310, end: 20160814
  22. SYMBICORT [Suspect]
     Active Substance: BUDESONIDE\FORMOTEROL FUMARATE DIHYDRATE
     Indication: ALLERGY TO CHEMICALS
     Dosage: 80/4.5 MICROGRAMS, TWO PUFFS TWO TIMES A DAY
     Route: 055
     Dates: start: 201310, end: 20160814
  23. SYMBICORT [Suspect]
     Active Substance: BUDESONIDE\FORMOTEROL FUMARATE DIHYDRATE
     Indication: BRONCHITIS
     Dosage: 160/4.5 MICROGRAMS TWO PUFFS TWO TIMES A DAY
     Route: 055
     Dates: start: 20160815
  24. SYMBICORT [Suspect]
     Active Substance: BUDESONIDE\FORMOTEROL FUMARATE DIHYDRATE
     Indication: ASTHMA
     Dosage: 160/4.5 MICROGRAMS TWO PUFFS TWO TIMES A DAY
     Route: 055
     Dates: start: 201609
  25. SYMBICORT [Suspect]
     Active Substance: BUDESONIDE\FORMOTEROL FUMARATE DIHYDRATE
     Indication: ALLERGY TO CHEMICALS
     Dosage: 160/4.5 MICROGRAMS TWO PUFFS TWO TIMES A DAY
     Route: 055
     Dates: start: 20170404
  26. SYMBICORT [Suspect]
     Active Substance: BUDESONIDE\FORMOTEROL FUMARATE DIHYDRATE
     Indication: ALLERGY TO CHEMICALS
     Dosage: 160/4.5 MICROGRAMS TWO PUFFS TWO TIMES A DAY
     Route: 055
  27. FLUTICASONE. [Concomitant]
     Active Substance: FLUTICASONE
  28. SYMBICORT [Suspect]
     Active Substance: BUDESONIDE\FORMOTEROL FUMARATE DIHYDRATE
     Indication: DYSPNOEA
     Dosage: 80/4.5 MICROGRAMS, TWO PUFFS TWO TIMES A DAY
     Route: 055
     Dates: end: 20120620
  29. METOPROLOL TARTRATE. [Concomitant]
     Active Substance: METOPROLOL TARTRATE
     Indication: HYPERTENSION
  30. SYMBICORT [Suspect]
     Active Substance: BUDESONIDE\FORMOTEROL FUMARATE DIHYDRATE
     Indication: BRONCHITIS
     Dosage: 80/4.5 MICROGRAMS, TWO PUFFS TWO TIMES A DAY
     Route: 055
     Dates: end: 20120620
  31. SYMBICORT [Suspect]
     Active Substance: BUDESONIDE\FORMOTEROL FUMARATE DIHYDRATE
     Indication: DYSPNOEA
     Dosage: 80/4.5 MICROGRAMS, TWO PUFFS TWO TIMES A DAY
     Route: 055
     Dates: start: 201310, end: 20160814
  32. SYMBICORT [Suspect]
     Active Substance: BUDESONIDE\FORMOTEROL FUMARATE DIHYDRATE
     Indication: ALLERGY TO CHEMICALS
     Dosage: 160/4.5 MICROGRAMS TWO PUFFS TWO TIMES A DAY
     Route: 055
     Dates: start: 201609
  33. SYMBICORT [Suspect]
     Active Substance: BUDESONIDE\FORMOTEROL FUMARATE DIHYDRATE
     Indication: DYSPNOEA
     Dosage: 160/4.5 MICROGRAMS TWO PUFFS TWO TIMES A DAY
     Route: 055
     Dates: start: 201609
  34. SYMBICORT [Suspect]
     Active Substance: BUDESONIDE\FORMOTEROL FUMARATE DIHYDRATE
     Indication: ASTHMA
     Dosage: 160/4.5 MICROGRAMS, UNKNOWN UNKNOWN
     Route: 055
  35. XOPENEX [Concomitant]
     Active Substance: LEVALBUTEROL HYDROCHLORIDE
     Indication: DYSPNOEA
     Dosage: 2 PUFFS EVERY 6 HRS PRN
     Route: 055

REACTIONS (10)
  - Memory impairment [Unknown]
  - Weight decreased [Unknown]
  - Malaise [Unknown]
  - Product use in unapproved indication [Unknown]
  - Visual impairment [Unknown]
  - Drug dose omission [Unknown]
  - Off label use [Unknown]
  - Intentional product misuse [Unknown]
  - Product quality issue [Unknown]
  - Product packaging quantity issue [Unknown]

NARRATIVE: CASE EVENT DATE: 20120620
